FAERS Safety Report 18774493 (Version 1)
Quarter: 2021Q1

REPORT INFORMATION
  Report Type: Spontaneous
  Country: IT (occurrence: IT)
  Receive Date: 20210122
  Receipt Date: 20210122
  Transmission Date: 20210419
  Serious: Yes (Hospitalization)
  Sender: FDA-Public Use
  Company Number: IT-PFIZER INC-2021043289

PATIENT
  Age: 31 Year
  Sex: Female

DRUGS (2)
  1. ZOLOFT [Suspect]
     Active Substance: SERTRALINE HYDROCHLORIDE
     Dosage: 150 MG, SINGLE FREQ:{TOTAL};
     Route: 048
     Dates: start: 20200623, end: 20200623
  2. HALCION [Suspect]
     Active Substance: TRIAZOLAM
     Dosage: 5 MG, SINGLE FREQ:{TOTAL};
     Dates: start: 20200623, end: 20200623

REACTIONS (3)
  - Drug abuse [Unknown]
  - Intentional overdose [Unknown]
  - Coma [Unknown]

NARRATIVE: CASE EVENT DATE: 20200623
